FAERS Safety Report 18132644 (Version 1)
Quarter: 2020Q3

REPORT INFORMATION
  Report Type: Spontaneous
  Country: US (occurrence: US)
  Receive Date: 20200811
  Receipt Date: 20200811
  Transmission Date: 20201103
  Serious: Yes (Other)
  Sender: FDA-Public Use
  Company Number: US-SUN PHARMACEUTICAL INDUSTRIES LTD-2020R1-256057

PATIENT
  Sex: Female

DRUGS (1)
  1. HYDROCHLOROTHIAZIDE. [Suspect]
     Active Substance: HYDROCHLOROTHIAZIDE
     Indication: MENIERE^S DISEASE
     Dosage: 25 MILLIGRAM, DAILY
     Route: 065

REACTIONS (3)
  - Squamous cell carcinoma [Unknown]
  - Sunburn [Unknown]
  - Actinic keratosis [Unknown]

NARRATIVE: CASE EVENT DATE: 2015
